FAERS Safety Report 7130695-3 (Version None)
Quarter: 2010Q4

REPORT INFORMATION
  Report Type: 
  Country: None (occurrence: None)
  Receive Date: 20101029
  Receipt Date: 20100726
  Transmission Date: 20110411
  Serious: Yes (Hospitalization)
  Sender: FDA-Public Use
  Company Number: US-003321

PATIENT
  Sex: Male

DRUGS (5)
  1. DEGARELIX (240 MG, 480 MG) [Suspect]
     Indication: PROSTATE CANCER
     Dosage: 240 MG 1X SUBCUTANEOUS, 480 MG 1X/3 MONTHS SUBCUTANEOUS
     Route: 058
     Dates: start: 20100202, end: 20100202
  2. DEGARELIX (240 MG, 480 MG) [Suspect]
     Indication: PROSTATE CANCER
     Dosage: 240 MG 1X SUBCUTANEOUS, 480 MG 1X/3 MONTHS SUBCUTANEOUS
     Route: 058
     Dates: start: 20100302
  3. MICARDIS [Concomitant]
  4. ASPIRIN [Concomitant]
  5. CALCIUM WITH VITAMIN D [Concomitant]

REACTIONS (6)
  - HEMIPARESIS [None]
  - LEFT ATRIAL DILATATION [None]
  - LEFT VENTRICULAR HYPERTROPHY [None]
  - MITRAL VALVE INCOMPETENCE [None]
  - PULMONARY HYPERTENSION [None]
  - TRICUSPID VALVE INCOMPETENCE [None]
